FAERS Safety Report 5738189-4 (Version None)
Quarter: 2008Q2

REPORT INFORMATION
  Report Type: 
  Country: None (occurrence: None)
  Receive Date: 20080514
  Receipt Date: 20080501
  Transmission Date: 20081010
  Serious: Yes (Hospitalization)
  Sender: FDA-Public Use
  Company Number: US-GENENTECH-260704

PATIENT

DRUGS (7)
  1. BLINDED BEVACIZUMAB [Suspect]
     Indication: BREAST CANCER
     Dosage: UNK, Q2W
     Route: 042
     Dates: start: 20080303
  2. CYCLOPHOSPHAMIDE [Suspect]
     Indication: BREAST CANCER
     Dosage: UNK, Q2W
     Route: 042
     Dates: start: 20080303
  3. DOXORUBICIN HCL [Suspect]
     Indication: BREAST CANCER
     Dosage: UNK, Q2W
     Route: 042
     Dates: start: 20080303
  4. PACLITAXEL [Suspect]
     Indication: BREAST CANCER
     Dosage: UNK, Q2W
     Route: 042
     Dates: start: 20080303
  5. DOXORUBICIN HCL [Suspect]
     Indication: BREAST CANCER
     Dosage: 60 MG/M2, Q2W
     Route: 042
     Dates: start: 20080303
  6. CYCLOPHOSPHAMIDE [Suspect]
     Indication: BREAST CANCER
     Dosage: 600 MG/M2, Q2W
     Route: 042
     Dates: start: 20080303
  7. FILGRASTIM [Suspect]
     Indication: BREAST CANCER
     Dosage: 5 A?G/KG, D 2-11 Q 2W
     Route: 058
     Dates: start: 20080303

REACTIONS (3)
  - DIARRHOEA [None]
  - HAEMOGLOBIN DECREASED [None]
  - MUCOSAL INFLAMMATION [None]
